FAERS Safety Report 12418199 (Version 1)
Quarter: 2016Q2

REPORT INFORMATION
  Report Type: Spontaneous
  Country: US (occurrence: US)
  Receive Date: 20160531
  Receipt Date: 20160531
  Transmission Date: 20160815
  Serious: Yes (Death, Other)
  Sender: FDA-Public Use
  Company Number: US-BRISTOL-MYERS SQUIBB COMPANY-BMS-2016-039607

PATIENT
  Age: 64 Year
  Sex: Male

DRUGS (1)
  1. WARFARIN SODIUM. [Suspect]
     Active Substance: WARFARIN SODIUM
     Indication: ATRIAL FIBRILLATION
     Route: 065

REACTIONS (7)
  - Fatigue [Unknown]
  - Localised infection [Unknown]
  - Skin odour abnormal [Unknown]
  - Mood altered [Unknown]
  - Peripheral swelling [Unknown]
  - Myocardial infarction [Fatal]
  - Feeling cold [Unknown]
